FAERS Safety Report 15941300 (Version 1)
Quarter: 2019Q1

REPORT INFORMATION
  Report Type: Spontaneous
  Country: FR (occurrence: FR)
  Receive Date: 20190208
  Receipt Date: 20190208
  Transmission Date: 20190417
  Serious: Yes (Hospitalization)
  Sender: FDA-Public Use
  Company Number: FR-SEPTODONT-201905014

PATIENT
  Age: 37 Year
  Sex: Male

DRUGS (1)
  1. SEPTANEST 40MG/ML ADR?NALIN?E AU 1/200.000 [Suspect]
     Active Substance: ARTICAINE HYDROCHLORIDE\EPINEPHRINE BITARTRATE
     Indication: DENTAL LOCAL ANAESTHESIA
     Dosage: HEALTHY SITE
     Route: 004
     Dates: start: 20181108

REACTIONS (5)
  - Dysphonia [Recovered/Resolved]
  - Dysphagia [Recovered/Resolved]
  - Face oedema [Recovered/Resolved]
  - Paraesthesia [Recovered/Resolved]
  - Erythema [Recovered/Resolved]

NARRATIVE: CASE EVENT DATE: 20181108
